FAERS Safety Report 10067989 (Version 1)
Quarter: 2014Q2

REPORT INFORMATION
  Report Type: Spontaneous
  Country: US (occurrence: US)
  Receive Date: 20140409
  Receipt Date: 20140409
  Transmission Date: 20141212
  Serious: Yes (Congenital Anomaly, Other)
  Sender: FDA-Public Use
  Company Number: US-PFIZER INC-2014097969

PATIENT
  Sex: Female

DRUGS (1)
  1. ZOLOFT [Suspect]
     Indication: DEPRESSION
     Dosage: UNK
     Route: 064

REACTIONS (9)
  - Maternal exposure during pregnancy [Not Recovered/Not Resolved]
  - Ventricular septal defect [Unknown]
  - Congenital spinal cord anomaly [Not Recovered/Not Resolved]
  - Congenital musculoskeletal anomaly [Unknown]
  - Aneurysm [Unknown]
  - Inferior vena cava dilatation [Unknown]
  - Lipoma [Unknown]
  - Kyphoscoliosis [Not Recovered/Not Resolved]
  - Hemivertebra [Not Recovered/Not Resolved]
